FAERS Safety Report 10425025 (Version 2)
Quarter: 2014Q4

REPORT INFORMATION
  Report Type: Spontaneous
  Country: US (occurrence: US)
  Receive Date: 20140902
  Receipt Date: 20141023
  Transmission Date: 20150528
  Serious: Yes (Other)
  Sender: FDA-Public Use
  Company Number: US-PFIZER INC-2014239792

PATIENT
  Age: 71 Year
  Sex: Female
  Weight: 91 kg

DRUGS (9)
  1. PREMARIN [Suspect]
     Active Substance: ESTROGENS, CONJUGATED
     Dosage: 0.625 MG AND 0.45 MG ON ALTERNATE DAYS
     Route: 048
  2. FAMOTIDINE. [Concomitant]
     Active Substance: FAMOTIDINE
     Indication: GASTROOESOPHAGEAL REFLUX DISEASE
     Dosage: 20 MG, DAILY
  3. PREMARIN [Suspect]
     Active Substance: ESTROGENS, CONJUGATED
     Dosage: 0.625 MG, QD
     Route: 048
     Dates: start: 20120220, end: 20140723
  4. TRAMADOL [Concomitant]
     Active Substance: TRAMADOL
     Indication: PAIN
     Dosage: 50 MG, AS NEEDED
  5. PREMARIN [Suspect]
     Active Substance: ESTROGENS, CONJUGATED
     Dosage: 0.45 MG, QD
     Route: 048
     Dates: start: 20140729
  6. HYDRALAZINE [Concomitant]
     Active Substance: HYDRALAZINE HYDROCHLORIDE
     Dosage: 25 MG, 2X/DAY
  7. PREMARIN [Suspect]
     Active Substance: ESTROGENS, CONJUGATED
     Indication: HORMONE REPLACEMENT THERAPY
     Dosage: 0.625 MG, DAILY
     Route: 048
     Dates: start: 1980
  8. FENOFIBRATE. [Concomitant]
     Active Substance: FENOFIBRATE
     Dosage: 134 MG, DAILY
  9. METOPROLOL TARTRATE. [Concomitant]
     Active Substance: METOPROLOL TARTRATE
     Dosage: 100 MG, 2X/DAY

REACTIONS (8)
  - Myocardial infarction [Unknown]
  - Diabetes mellitus [Unknown]
  - Alopecia [Recovered/Resolved]
  - Hypertension [Unknown]
  - Blood triglycerides abnormal [Unknown]
  - Blood cholesterol increased [Unknown]
  - Gallbladder disorder [Unknown]
  - Memory impairment [Unknown]
